FAERS Safety Report 24292177 (Version 1)
Quarter: 2024Q3

REPORT INFORMATION
  Report Type: Spontaneous
  Country: US (occurrence: None)
  Receive Date: 20240906
  Receipt Date: 20240906
  Transmission Date: 20241017
  Serious: No
  Sender: DOMPE FARMACEUTICI
  Company Number: US-FARMAPROD-202307-2077

PATIENT
  Sex: Male
  Weight: 63.96 kg

DRUGS (16)
  1. OXERVATE [Suspect]
     Active Substance: CENEGERMIN-BKBJ
     Indication: Neurotrophic keratopathy
     Route: 047
     Dates: start: 20230619
  2. ROSUVASTATIN CALCIUM [Concomitant]
     Active Substance: ROSUVASTATIN CALCIUM
  3. GABAPENTIN [Concomitant]
     Active Substance: GABAPENTIN
  4. TYLENOL [Concomitant]
     Active Substance: ACETAMINOPHEN
  5. EXCEDRIN EXTRA STRENGTH [Concomitant]
     Active Substance: ACETAMINOPHEN\ASPIRIN\CAFFEINE
     Dosage: DROP SUSPENSION
  6. CRESTOR [Concomitant]
     Active Substance: ROSUVASTATIN CALCIUM
  7. OFLOXACIN [Concomitant]
     Active Substance: OFLOXACIN
  8. FLUOROMETHOLONE [Concomitant]
     Active Substance: FLUOROMETHOLONE
     Dosage: DROP SUSPENSION
  9. TOBRAMYCIN [Concomitant]
     Active Substance: TOBRAMYCIN\TOBRAMYCIN SULFATE
  10. AMLODIPINE BESYLATE [Concomitant]
     Active Substance: AMLODIPINE BESYLATE
  11. ASPIRIN [Concomitant]
     Active Substance: ASPIRIN
  12. MIRTAZAPINE [Concomitant]
     Active Substance: MIRTAZAPINE
  13. FOSAMAX [Concomitant]
     Active Substance: ALENDRONATE SODIUM
  14. METOPROLOL TARTRATE [Concomitant]
     Active Substance: METOPROLOL TARTRATE
  15. ALBUTEROL SULFATE [Concomitant]
     Active Substance: ALBUTEROL SULFATE
     Dosage: HYDROFLUOROALKANE AEROSOL WITH ADAPTER
  16. NM-6603 [Concomitant]
     Active Substance: NM-6603

REACTIONS (2)
  - Inappropriate schedule of product administration [Recovered/Resolved]
  - Eye pain [Recovered/Resolved]
